FAERS Safety Report 8785587 (Version 2)
Quarter: 2012Q4

REPORT INFORMATION
  Report Type: Report from Study
  Country: JP (occurrence: JP)
  Receive Date: 20120914
  Receipt Date: 20121005
  Transmission Date: 20130627
  Serious: Yes (Hospitalization)
  Sender: FDA-Public Use
  Company Number: JP-VERTEX PHARMACEUTICAL INC.-AE-2012-007910

PATIENT
  Age: 73 Year
  Sex: Female

DRUGS (20)
  1. VX-950 [Suspect]
     Indication: HEPATITIS C
     Dosage: 1500 mg, qd
     Route: 048
     Dates: start: 20120406, end: 20120409
  2. VX-950 [Suspect]
     Dosage: 1000 mg, qd
     Route: 048
     Dates: start: 20120410, end: 20120413
  3. VX-950 [Suspect]
     Dosage: 500 mg, qd
     Route: 048
     Dates: start: 20120414, end: 20120515
  4. VX-950 [Suspect]
     Dosage: 750 mg, qd
     Route: 048
     Dates: start: 20120516, end: 20120517
  5. VX-950 [Suspect]
     Dosage: 500 mg, qd
     Route: 048
     Dates: start: 20120518, end: 20120601
  6. VX-950 [Suspect]
     Dosage: 750 mg, qd
     Route: 048
     Dates: start: 20120602, end: 20120629
  7. RIBAVIRIN [Suspect]
     Indication: HEPATITIS C
     Dosage: 400 mg, qd
     Route: 048
     Dates: start: 20120406, end: 20120409
  8. RIBAVIRIN [Suspect]
     Dosage: 200 mg, qd
     Route: 048
     Dates: start: 20120410, end: 20120413
  9. RIBAVIRIN [Suspect]
     Dosage: 200 mg, qod
     Route: 048
     Dates: start: 20120414, end: 20120612
  10. RIBAVIRIN [Suspect]
     Dosage: 200 mg, qd
     Route: 048
     Dates: start: 20120613, end: 20120921
  11. PEGINTERFERON ALFA-2B [Suspect]
     Indication: HEPATITIS C
     Dosage: 1.5 ?g/kg, UNK
     Route: 058
     Dates: start: 20120406, end: 20120921
  12. GASLON N [Concomitant]
     Dosage: 4 mg, qd
     Route: 048
  13. MICOMBI [Concomitant]
     Dosage: 1 DF, qd
     Route: 048
  14. AMARYL [Concomitant]
     Dosage: 0.5 mg, qd
     Route: 048
  15. ALLEGRA [Concomitant]
     Dosage: 120 mg, qd
     Route: 048
     Dates: start: 20120406, end: 20120809
  16. HIRUDOID                           /00723701/ [Concomitant]
     Dosage: UNK UNK, prn
     Route: 061
     Dates: start: 20120406
  17. CONIEL [Concomitant]
     Dosage: 8 mg, qd
     Route: 048
     Dates: start: 2012, end: 20120427
  18. CONIEL [Concomitant]
     Dosage: 4 mg, qd
     Route: 048
     Dates: start: 20120428, end: 20120503
  19. SOLDEM 3A [Concomitant]
     Dosage: 1000 ml, qd
     Route: 042
     Dates: start: 20120409
  20. NEXIUM                             /01479302/ [Concomitant]
     Dosage: 20 mg, qd
     Route: 048

REACTIONS (1)
  - Renal disorder [Recovered/Resolved]
